FAERS Safety Report 8430988-3 (Version None)
Quarter: 2012Q2

REPORT INFORMATION
  Report Type: 
  Country: None (occurrence: None)
  Receive Date: 20120612
  Receipt Date: 20120605
  Transmission Date: 20120825
  Serious: Yes (Other)
  Sender: FDA-Public Use
  Company Number: US-PFIZER INC-2012123111

PATIENT
  Sex: Male

DRUGS (4)
  1. LIPITOR [Suspect]
     Dosage: UNK
  2. CELEBREX [Suspect]
     Indication: BACK INJURY
     Dosage: 200 MG, DAILY
     Route: 048
     Dates: start: 20120514, end: 20120501
  3. ARICEPT [Concomitant]
     Indication: MEMORY IMPAIRMENT
     Dosage: UNK
  4. METOPROLOL [Concomitant]
     Indication: BLOOD PRESSURE ABNORMAL
     Dosage: 50 MG, UNK

REACTIONS (3)
  - ABDOMINAL DISCOMFORT [None]
  - FALL [None]
  - BACK INJURY [None]
